FAERS Safety Report 6397427-8 (Version None)
Quarter: 2009Q4

REPORT INFORMATION
  Report Type: 
  Country: None (occurrence: None)
  Receive Date: 20091008
  Receipt Date: 20090520
  Transmission Date: 20100525
  Serious: No
  Sender: FDA-Public Use
  Company Number: 2009BH008916

PATIENT
  Age: 11 Year
  Sex: Male

DRUGS (2)
  1. CEPROTIN [Suspect]
     Indication: PROPHYLAXIS
     Dosage: 100 IU/KG; EVERY DAY
  2. LOVENOX [Concomitant]

REACTIONS (3)
  - BLOOD FIBRINOGEN DECREASED [None]
  - CONTUSION [None]
  - DRUG LEVEL INCREASED [None]
